FAERS Safety Report 15864540 (Version 1)
Quarter: 2019Q1

REPORT INFORMATION
  Report Type: Other
  Country: ES (occurrence: ES)
  Receive Date: 20190124
  Receipt Date: 20190124
  Transmission Date: 20190417
  Serious: Yes (Hospitalization)
  Sender: FDA-Public Use
  Company Number: ES-SERVIER-S19000477

PATIENT

DRUGS (6)
  1. SEPTRIN PAEDIATRIC [Concomitant]
     Active Substance: SULFAMETHOXAZOLE\TRIMETHOPRIM
     Indication: OPPORTUNISTIC INFECTION PROPHYLAXIS
     Dosage: 4 ML
     Route: 048
     Dates: start: 20170307
  2. ZOVIRAX [Concomitant]
     Active Substance: ACYCLOVIR
     Indication: OPPORTUNISTIC INFECTION PROPHYLAXIS
     Dosage: 120 MG
     Route: 048
     Dates: start: 20170307
  3. TN UNSPECIFIED [Suspect]
     Active Substance: TROLNITRATE
     Indication: ACUTE LYMPHOCYTIC LEUKAEMIA
     Dosage: 17.1 MG
     Route: 042
     Dates: start: 20180104, end: 20180111
  4. TN UNSPECIFIED [Suspect]
     Active Substance: TROLNITRATE
     Indication: ACUTE LYMPHOCYTIC LEUKAEMIA
     Dosage: 5 MG
     Route: 048
     Dates: start: 20180104, end: 20180116
  5. ONCASPAR [Suspect]
     Active Substance: PEGASPARGASE
     Indication: ACUTE LYMPHOCYTIC LEUKAEMIA
     Dosage: 570.5 IU
     Route: 030
     Dates: start: 20180104, end: 20180104
  6. TN UNSPECIFIED [Suspect]
     Active Substance: TROLNITRATE
     Indication: ACUTE LYMPHOCYTIC LEUKAEMIA
     Dosage: 0.86 MG
     Route: 042
     Dates: start: 20180104, end: 20180111

REACTIONS (3)
  - Pneumatosis intestinalis [Recovering/Resolving]
  - Pancytopenia [Recovered/Resolved]
  - Pancreatitis acute [Recovered/Resolved]

NARRATIVE: CASE EVENT DATE: 20180116
